FAERS Safety Report 10265430 (Version 1)
Quarter: 2014Q2

REPORT INFORMATION
  Report Type: Spontaneous
  Country: US (occurrence: None)
  Receive Date: 20140624
  Receipt Date: 20140624
  Transmission Date: 20141212
  Serious: Yes (Other)
  Sender: FDA-Public Use
  Company Number: AUR-APL-2014-06613

PATIENT
  Age: 65 Year
  Sex: Female
  Weight: 54.4 kg

DRUGS (4)
  1. MELOXICAM 7.5 [Suspect]
     Indication: RHEUMATOID ARTHRITIS
  2. CELEBREX (CELECOXIB) [Suspect]
     Indication: RHEUMATOID ARTHRITIS
  3. FOLIC ACID (FOLIC ACID) [Suspect]
     Indication: RHEUMATOID ARTHRITIS
  4. VITAMIN D (ERGOCALCIFEROL) [Suspect]
     Indication: RHEUMATOID ARTHRITIS
     Dosage: UNK, EVERY WEEK, UNKNOWN

REACTIONS (1)
  - Rheumatoid arthritis [None]
